FAERS Safety Report 7419441-3 (Version None)
Quarter: 2011Q2

REPORT INFORMATION
  Report Type: 
  Country: None (occurrence: None)
  Receive Date: 20110418
  Receipt Date: 20110411
  Transmission Date: 20111010
  Serious: Yes (Other)
  Sender: FDA-Public Use
  Company Number: JP-AMGEN-JPNSP2011019218

PATIENT
  Age: 45 Year
  Sex: Female

DRUGS (4)
  1. RHEUMATREX [Suspect]
     Indication: RHEUMATOID ARTHRITIS
     Dosage: 2 MG, 2X/WEEK
     Dates: start: 20110201
  2. ENBREL [Suspect]
     Indication: RHEUMATOID ARTHRITIS
     Dosage: 25 MG, TWICE MONTHLY
     Dates: start: 20060101
  3. ENBREL [Suspect]
     Dosage: 25 MG, WEEKLY
  4. ENBREL [Suspect]
     Dosage: 25 MG, 2X/WEEK

REACTIONS (3)
  - RHEUMATOID ARTHRITIS [None]
  - PAIN [None]
  - COUGH [None]
